FAERS Safety Report 22055928 (Version 1)
Quarter: 2023Q1

REPORT INFORMATION
  Report Type: Spontaneous
  Country: US (occurrence: None)
  Receive Date: 20230302
  Receipt Date: 20230302
  Transmission Date: 20230418
  Serious: Yes (Hospitalization)
  Sender: FDA-Public Use
  Company Number: None

PATIENT
  Age: 43 Year
  Sex: Male

DRUGS (2)
  1. PULMICORT RESPULES [Suspect]
     Active Substance: BUDESONIDE
     Indication: Bronchiectasis
     Dosage: 0.5 MG/2ML INHALATION?? INHALE 2 ML VIA NEBULIZER TWICE DAILY FOR BRONCHIECTASIS
     Route: 050
     Dates: start: 20190522
  2. PULMICORT RESPULES [Suspect]
     Active Substance: BUDESONIDE
     Dosage: FREQUENCY : TWICE A DAY;?OTHER ROUTE : NEBULIZER;?
     Route: 050

REACTIONS (1)
  - Pneumonia [None]

NARRATIVE: CASE EVENT DATE: 20230212
